FAERS Safety Report 23779888 (Version 3)
Quarter: 2024Q2

REPORT INFORMATION
  Report Type: Report from Study
  Country: JP (occurrence: JP)
  Receive Date: 20240424
  Receipt Date: 20240527
  Transmission Date: 20240716
  Serious: Yes (Hospitalization, Other)
  Sender: FDA-Public Use
  Company Number: JP-PFIZER INC-PV202300090645

PATIENT
  Age: 6 Year
  Sex: Female
  Weight: 30.9 kg

DRUGS (11)
  1. SIROLIMUS [Suspect]
     Active Substance: SIROLIMUS
     Indication: Lymphatic malformation
     Dosage: 2 MG,1 D
     Route: 048
     Dates: start: 20220118, end: 20220124
  2. SIROLIMUS [Suspect]
     Active Substance: SIROLIMUS
     Dosage: 2.5 MG,1 D
     Route: 048
     Dates: start: 20220125, end: 20220607
  3. SIROLIMUS [Suspect]
     Active Substance: SIROLIMUS
     Dosage: 1.5 MG,1 D
     Route: 048
     Dates: start: 20220608, end: 20220713
  4. SIROLIMUS [Suspect]
     Active Substance: SIROLIMUS
     Dosage: 2 MG,1 D
     Route: 048
     Dates: start: 20220714, end: 20221026
  5. SIROLIMUS [Suspect]
     Active Substance: SIROLIMUS
     Dosage: 2.5 MG,1 D
     Route: 048
     Dates: start: 20221027, end: 20221119
  6. SIROLIMUS [Suspect]
     Active Substance: SIROLIMUS
     Dosage: 2.5 MG,1 D
     Route: 048
     Dates: start: 20221126, end: 20230329
  7. SIROLIMUS [Suspect]
     Active Substance: SIROLIMUS
     Dosage: 3 MG,1 D
     Route: 048
     Dates: start: 20230330, end: 20230607
  8. SIROLIMUS [Suspect]
     Active Substance: SIROLIMUS
     Dosage: 2 MG,1 D
     Route: 048
     Dates: start: 20230608, end: 20230628
  9. SIROLIMUS [Suspect]
     Active Substance: SIROLIMUS
     Dosage: 2.5 MG,1 D
     Route: 048
     Dates: start: 20230629, end: 20231011
  10. SIROLIMUS [Suspect]
     Active Substance: SIROLIMUS
     Dosage: 2 MG,1 D
     Route: 048
     Dates: start: 20231012, end: 20231217
  11. SIROLIMUS [Suspect]
     Active Substance: SIROLIMUS
     Dosage: 2 MG,1 D
     Route: 048
     Dates: start: 20231225

REACTIONS (7)
  - Infection [Recovering/Resolving]
  - Infection [Recovering/Resolving]
  - Anxiety disorder [Not Recovered/Not Resolved]
  - Nausea [Recovering/Resolving]
  - Abdominal pain [Recovering/Resolving]
  - Drug level fluctuating [Unknown]
  - Insomnia [Not Recovered/Not Resolved]

NARRATIVE: CASE EVENT DATE: 20220122
